FAERS Safety Report 6419646-4 (Version None)
Quarter: 2009Q4

REPORT INFORMATION
  Report Type: 
  Country: None (occurrence: None)
  Receive Date: 20091029
  Receipt Date: 20091027
  Transmission Date: 20100525
  Serious: Yes (Other)
  Sender: FDA-Public Use
  Company Number: A0813491A

PATIENT
  Sex: Female

DRUGS (1)
  1. AVANDIA [Suspect]
     Indication: DIABETES MELLITUS
     Route: 048
     Dates: start: 20010520, end: 20020401

REACTIONS (3)
  - EYE DISORDER [None]
  - HAEMORRHAGE [None]
  - OEDEMA PERIPHERAL [None]
